FAERS Safety Report 25551099 (Version 3)
Quarter: 2025Q4

REPORT INFORMATION
  Report Type: Spontaneous
  Country: JP (occurrence: JP)
  Receive Date: 20250714
  Receipt Date: 20251214
  Transmission Date: 20260118
  Serious: Yes (Hospitalization)
  Sender: AMGEN
  Company Number: JP-AMGEN-JPNSP2025134287

PATIENT
  Age: 76 Year
  Sex: Male

DRUGS (2)
  1. IMDELLTRA [Suspect]
     Active Substance: TARLATAMAB-DLLE
     Indication: Small cell lung cancer extensive stage
     Dosage: 1 MILLIGRAM
     Route: 040
     Dates: start: 20250605
  2. IMDELLTRA [Suspect]
     Active Substance: TARLATAMAB-DLLE
     Dosage: 10 MILLIGRAM, PERMANENTLY DISCONTINUED
     Route: 040
     Dates: start: 20250612, end: 202506

REACTIONS (3)
  - Immune effector cell-associated neurotoxicity syndrome [Recovered/Resolved]
  - Pneumonia aspiration [Not Recovered/Not Resolved]
  - Therapy partial responder [Unknown]

NARRATIVE: CASE EVENT DATE: 20250101
